FAERS Safety Report 7416629-2 (Version None)
Quarter: 2011Q2

REPORT INFORMATION
  Report Type: 
  Country: None (occurrence: None)
  Receive Date: 20110415
  Receipt Date: 20110406
  Transmission Date: 20111010
  Serious: No
  Sender: FDA-Public Use
  Company Number: US-BIOGENIDEC-2010BI021763

PATIENT
  Sex: Female

DRUGS (3)
  1. ACETAMINOPHEN [Concomitant]
     Indication: PAIN IN JAW
  2. TYSABRI [Suspect]
     Indication: MULTIPLE SCLEROSIS
     Route: 042
     Dates: start: 20081217
  3. ANTIBIOTICS (NOS) [Concomitant]
     Indication: PROPHYLAXIS URINARY TRACT INFECTION

REACTIONS (7)
  - HEARING IMPAIRED [None]
  - URINARY TRACT INFECTION [None]
  - GAIT DISTURBANCE [None]
  - BACK PAIN [None]
  - DYSGRAPHIA [None]
  - VISUAL FIELD DEFECT [None]
  - STRESS [None]
